FAERS Safety Report 9225100 (Version 1)
Quarter: 2013Q2

REPORT INFORMATION
  Report Type: Spontaneous
  Country: CH (occurrence: CH)
  Receive Date: 20130411
  Receipt Date: 20130411
  Transmission Date: 20140414
  Serious: Yes (Other)
  Sender: FDA-Public Use
  Company Number: CH-JNJFOC-20130317527

PATIENT
  Age: 41 Year
  Sex: Female

DRUGS (2)
  1. DUROGESIC [Suspect]
     Indication: BACK PAIN
     Route: 062
  2. MORPHINE SULFATE [Suspect]
     Indication: BACK PAIN
     Dosage: (20-10-20)
     Route: 048

REACTIONS (1)
  - Exposure during pregnancy [Recovered/Resolved]
